FAERS Safety Report 13125594 (Version 16)
Quarter: 2017Q3

REPORT INFORMATION
  Report Type: Spontaneous
  Country: KR (occurrence: KR)
  Receive Date: 20170118
  Receipt Date: 20170721
  Transmission Date: 20171127
  Serious: Yes (Other)
  Sender: FDA-Public Use
  Company Number: KR-009507513-1701KOR003367

PATIENT
  Age: 64 Year
  Sex: Female
  Weight: 48.4 kg

DRUGS (36)
  1. EMEND (FOSAPREPITANT DIMEGLUMINE) [Suspect]
     Active Substance: FOSAPREPITANT DIMEGLUMINE
     Dosage: 150 MG, ONCE
     Route: 042
     Dates: start: 20170221, end: 20170221
  2. EMEND (FOSAPREPITANT DIMEGLUMINE) [Suspect]
     Active Substance: FOSAPREPITANT DIMEGLUMINE
     Dosage: 150 MG, ONCE
     Route: 042
     Dates: start: 20170404, end: 20170404
  3. CISPLAN [Concomitant]
     Active Substance: CISPLATIN
     Dosage: STRENGTH: 10MG/20ML, 35 MG, QD, CYCLE 4
     Route: 042
     Dates: start: 20170314, end: 20170317
  4. SALON [Concomitant]
     Dosage: 500 MG, QD
     Route: 042
     Dates: start: 20170221, end: 20170225
  5. CRAVIT [Concomitant]
     Active Substance: LEVOFLOXACIN
     Dosage: 500 MG, QD
     Route: 048
     Dates: start: 20170314, end: 20170323
  6. CRAVIT [Concomitant]
     Active Substance: LEVOFLOXACIN
     Dosage: 500 MG, QD
     Route: 048
     Dates: start: 20170404
  7. EMEND (FOSAPREPITANT DIMEGLUMINE) [Suspect]
     Active Substance: FOSAPREPITANT DIMEGLUMINE
     Dosage: 150 MG, ONCE
     Route: 042
     Dates: start: 20170131, end: 20170131
  8. LASTET [Concomitant]
     Active Substance: ETOPOSIDE
     Dosage: STRENGTH: 100MG/5ML (AMP), 55.5 MG, QD; CYCLE 3
     Route: 042
     Dates: start: 20170221, end: 20170224
  9. CISPLAN [Concomitant]
     Active Substance: CISPLATIN
     Dosage: STRENGTH: 10MG/20ML, 35 MG, QD, CYCLE 3
     Route: 042
     Dates: start: 20170221, end: 20170224
  10. SEPTRIN [Concomitant]
     Active Substance: SULFAMETHOXAZOLE\TRIMETHOPRIM
     Dosage: 1 TABLET, TWICE DAILY
     Route: 048
     Dates: start: 20170404, end: 20170410
  11. CISPLAN [Concomitant]
     Active Substance: CISPLATIN
     Dosage: STRENGTH: 10MG/20ML, 35 MG, QD, CYCLE 5
     Route: 042
     Dates: start: 20170404, end: 20170407
  12. SALON [Concomitant]
     Dosage: 500 MG, QD
     Route: 042
     Dates: start: 20170131, end: 20170204
  13. ALOXI [Concomitant]
     Active Substance: PALONOSETRON HYDROCHLORIDE
     Dosage: 0.25 MG, ONCE
     Route: 042
     Dates: start: 20170221, end: 20170221
  14. LASTET [Concomitant]
     Active Substance: ETOPOSIDE
     Dosage: STRENGTH: 100MG/5ML (AMP), 55.6 MG, QD; CYCLE 2
     Route: 042
     Dates: start: 20170131, end: 20170203
  15. CISPLAN [Concomitant]
     Active Substance: CISPLATIN
     Dosage: STRENGTH: 10MG/20ML, 34.7 MG, QD, CYCLE 2
     Route: 042
     Dates: start: 20170131, end: 20170203
  16. SALON [Concomitant]
     Indication: PROPHYLAXIS OF NAUSEA AND VOMITING
     Dosage: 500 MG, QD
     Route: 042
     Dates: start: 20170102, end: 20170106
  17. SALON [Concomitant]
     Dosage: 500 MG, QD
     Route: 042
     Dates: start: 20170404, end: 20170408
  18. SEPTRIN [Concomitant]
     Active Substance: SULFAMETHOXAZOLE\TRIMETHOPRIM
     Indication: INFECTION PROPHYLAXIS
     Dosage: 1 TABLET, TWICE DAILY
     Route: 048
     Dates: start: 20170102, end: 20170108
  19. EMEND (FOSAPREPITANT DIMEGLUMINE) [Suspect]
     Active Substance: FOSAPREPITANT DIMEGLUMINE
     Indication: PROPHYLAXIS OF NAUSEA AND VOMITING
     Dosage: 150 MG, ONCE
     Route: 042
     Dates: start: 20170102, end: 20170102
  20. LASTET [Concomitant]
     Active Substance: ETOPOSIDE
     Indication: B-CELL LYMPHOMA RECURRENT
     Dosage: STRENGTH: 100MG/5ML (AMP), 55.5 MG, QD; CYCLE 1
     Route: 042
     Dates: start: 20170102, end: 20170105
  21. CISPLAN [Concomitant]
     Active Substance: CISPLATIN
     Indication: B-CELL LYMPHOMA RECURRENT
     Dosage: STRENGTH: 10MG/20ML, 34.7 MG, QD, CYCLE 1
     Route: 042
     Dates: start: 20170102, end: 20170105
  22. SALON [Concomitant]
     Dosage: 500 MG, QD
     Route: 042
     Dates: start: 20170314, end: 20170318
  23. ALOXI [Concomitant]
     Active Substance: PALONOSETRON HYDROCHLORIDE
     Dosage: 0.25 MG, ONCE
     Route: 042
     Dates: start: 20170404, end: 20170404
  24. SYNTHYROXINE [Concomitant]
     Active Substance: LEVOTHYROXINE SODIUM
     Indication: HYPOTHYROIDISM
     Dosage: 75 MICROGRAM, QD
     Route: 048
     Dates: start: 20100720
  25. CRAVIT [Concomitant]
     Active Substance: LEVOFLOXACIN
     Dosage: 500 MG, QD
     Route: 048
     Dates: start: 20170221, end: 20170301
  26. SEPTRIN [Concomitant]
     Active Substance: SULFAMETHOXAZOLE\TRIMETHOPRIM
     Dosage: 1 TABLET, TWICE DAILY
     Route: 048
     Dates: start: 20170314, end: 20170320
  27. EMEND (FOSAPREPITANT DIMEGLUMINE) [Suspect]
     Active Substance: FOSAPREPITANT DIMEGLUMINE
     Dosage: 150 MG, ONCE
     Route: 042
     Dates: start: 20170314, end: 20170314
  28. ALOXI [Concomitant]
     Active Substance: PALONOSETRON HYDROCHLORIDE
     Indication: PROPHYLAXIS OF NAUSEA AND VOMITING
     Dosage: 0.25 MG, ONCE
     Route: 042
     Dates: start: 20170102, end: 20170102
  29. ALOXI [Concomitant]
     Active Substance: PALONOSETRON HYDROCHLORIDE
     Dosage: 0.25 MG, ONCE
     Route: 042
     Dates: start: 20170131, end: 20170131
  30. CRAVIT [Concomitant]
     Active Substance: LEVOFLOXACIN
     Indication: INFECTION PROPHYLAXIS
     Dosage: 500 MG, QD
     Route: 048
     Dates: start: 20170102, end: 20170111
  31. LASTET [Concomitant]
     Active Substance: ETOPOSIDE
     Dosage: STRENGTH: 100MG/5ML (AMP), 55 MG, QD; CYCLE 4
     Route: 042
     Dates: start: 20170314, end: 20170317
  32. LASTET [Concomitant]
     Active Substance: ETOPOSIDE
     Dosage: STRENGTH: 100MG/5ML (AMP), 56 MG, QD; CYCLE 5
     Route: 042
     Dates: start: 20170404, end: 20170407
  33. CRAVIT [Concomitant]
     Active Substance: LEVOFLOXACIN
     Dosage: 500 MG, QD
     Route: 048
     Dates: start: 20170131, end: 20170209
  34. SEPTRIN [Concomitant]
     Active Substance: SULFAMETHOXAZOLE\TRIMETHOPRIM
     Dosage: 1 TABLET, TWICE DAILY
     Route: 048
     Dates: start: 20170131, end: 20170206
  35. SEPTRIN [Concomitant]
     Active Substance: SULFAMETHOXAZOLE\TRIMETHOPRIM
     Dosage: 1 TABLET, TWICE DAILY
     Route: 048
     Dates: start: 20170221, end: 20170227
  36. ALOXI [Concomitant]
     Active Substance: PALONOSETRON HYDROCHLORIDE
     Dosage: 0.25 MG, ONCE
     Route: 042
     Dates: start: 20170314, end: 20170314

REACTIONS (21)
  - Hypokalaemia [Recovered/Resolved]
  - Hyponatraemia [Recovered/Resolved]
  - Platelet count decreased [Recovered/Resolved]
  - Nausea [Recovered/Resolved]
  - Constipation [Recovered/Resolved]
  - Inappropriate antidiuretic hormone secretion [Recovered/Resolved]
  - Neutrophil count decreased [Recovered/Resolved]
  - Platelet count decreased [Recovered/Resolved]
  - Pyrexia [Recovered/Resolved]
  - Constipation [Recovered/Resolved]
  - Headache [Recovered/Resolved]
  - Platelet count decreased [Recovered/Resolved]
  - Chills [Recovered/Resolved]
  - Neuropathy peripheral [Recovering/Resolving]
  - Abdominal pain upper [Recovered/Resolved]
  - Upper respiratory tract infection [Recovered/Resolved]
  - Neutrophil count decreased [Recovered/Resolved]
  - Platelet count decreased [Recovered/Resolved]
  - Nausea [Recovered/Resolved]
  - Decreased appetite [Recovered/Resolved]
  - Nausea [Recovering/Resolving]

NARRATIVE: CASE EVENT DATE: 20170103
